FAERS Safety Report 8416722-1 (Version None)
Quarter: 2012Q2

REPORT INFORMATION
  Report Type: 
  Country: None (occurrence: None)
  Receive Date: 20120323
  Receipt Date: 20110222
  Transmission Date: 20120825
  Serious: Yes (Other)
  Sender: FDA-Public Use
  Company Number: 163-21880-11023026

PATIENT
  Age: 58 Year
  Sex: Female
  Weight: 70.3075 kg

DRUGS (13)
  1. REVLIMID [Suspect]
     Indication: MULTIPLE MYELOMA
     Dosage: 10 MG, 1 IN 1 D, PO ; 5 MG, DAILY FOR 3 WEEKS 1 WEEK OFF, PO
     Route: 048
     Dates: start: 20101201
  2. REVLIMID [Suspect]
     Indication: MULTIPLE MYELOMA
     Dosage: 10 MG, 1 IN 1 D, PO ; 5 MG, DAILY FOR 3 WEEKS 1 WEEK OFF, PO
     Route: 048
     Dates: start: 20110126
  3. METOCLOPRAMIDE [Concomitant]
  4. VALTREX [Concomitant]
  5. ALTACE [Concomitant]
  6. DILTIAZEM [Concomitant]
  7. DICLOSAMINE (ALL OTHER THERAPEUTIC PRODUCTS) [Concomitant]
  8. ZOLPIDEM [Concomitant]
  9. ZEGERID (OMEPRAZOLE) [Concomitant]
  10. MAXZIDE [Concomitant]
  11. ASPIRIN [Concomitant]
  12. CITALOPRAM HYDROBROMIDE [Concomitant]
  13. AMBIEN [Concomitant]

REACTIONS (3)
  - PLATELET COUNT DECREASED [None]
  - ANAEMIA [None]
  - LIP DRY [None]
